FAERS Safety Report 17559640 (Version 1)
Quarter: 2020Q1

REPORT INFORMATION
  Report Type: Spontaneous
  Country: US (occurrence: US)
  Receive Date: 20200319
  Receipt Date: 20200319
  Transmission Date: 20200409
  Serious: No
  Sender: FDA-Public Use
  Company Number: US-SA-2020SA062906

PATIENT
  Age: 68 Year
  Sex: Male

DRUGS (1)
  1. PRALUENT [Suspect]
     Active Substance: ALIROCUMAB

REACTIONS (7)
  - Condition aggravated [Unknown]
  - Drug ineffective [Unknown]
  - Injection site pruritus [Unknown]
  - Injection site exfoliation [Unknown]
  - Injection site erythema [Unknown]
  - Low density lipoprotein increased [Unknown]
  - Injection site infection [Unknown]

NARRATIVE: CASE EVENT DATE: 202001
